FAERS Safety Report 21776209 (Version 1)
Quarter: 2022Q4

REPORT INFORMATION
  Report Type: Spontaneous
  Country: US (occurrence: None)
  Receive Date: 20221226
  Receipt Date: 20221226
  Transmission Date: 20230113
  Serious: No
  Sender: FDA-Public Use
  Company Number: 2022A408129

PATIENT
  Age: 20625 Day
  Sex: Female
  Weight: 147.4 kg

DRUGS (30)
  1. KOSELUGO [Suspect]
     Active Substance: SELUMETINIB
     Indication: Brain neoplasm malignant
     Route: 048
     Dates: start: 20220713, end: 20221008
  2. ACETAMINOPHEN [Concomitant]
     Active Substance: ACETAMINOPHEN
  3. ATORVASTATIN [Concomitant]
     Active Substance: ATORVASTATIN
  4. CALCIUM [Concomitant]
     Active Substance: CALCIUM
     Dosage: 600
  5. CETAPHIL DAILY FACIAL MOISTURIZER WITH SUNCREEN SPF 50 [Concomitant]
     Active Substance: OCTINOXATE\OCTISALATE\OCTOCRYLENE\OXYBENZONE\TITANIUM DIOXIDE
     Dosage: 600
  6. CYCLOBENZAPRINE [Concomitant]
     Active Substance: CYCLOBENZAPRINE
  7. DEXAMETHASONE [Concomitant]
     Active Substance: DEXAMETHASONE
  8. DICLOFENAC [Concomitant]
     Active Substance: DICLOFENAC
  9. DOCUSATE [Concomitant]
     Active Substance: DOCUSATE
  10. FLUOXETINE [Concomitant]
     Active Substance: FLUOXETINE HYDROCHLORIDE
  11. FAMOTIDINE [Concomitant]
     Active Substance: FAMOTIDINE
  12. FUROSEMIDE [Concomitant]
     Active Substance: FUROSEMIDE
  13. HYDROXYZINE [Concomitant]
     Active Substance: HYDROXYZINE HYDROCHLORIDE
  14. IBUPROFEN [Concomitant]
     Active Substance: IBUPROFEN
  15. KOSELUGO [Concomitant]
     Active Substance: SELUMETINIB
  16. LORAZEPAM [Concomitant]
     Active Substance: LORAZEPAM
  17. LANTUS [Concomitant]
     Active Substance: INSULIN GLARGINE
  18. LIDOCAINE [Concomitant]
     Active Substance: LIDOCAINE
  19. LOPERAMIDE [Concomitant]
     Active Substance: LOPERAMIDE
  20. MAGNESIUM CHLORIDE [Concomitant]
     Active Substance: MAGNESIUM CHLORIDE
  21. METFORMIN [Concomitant]
     Active Substance: METFORMIN HYDROCHLORIDE
  22. MIRALAX [Concomitant]
     Active Substance: POLYETHYLENE GLYCOL 3350
  23. VITAMINS [Concomitant]
     Active Substance: VITAMINS
  24. NYSTATIN [Concomitant]
     Active Substance: NYSTATIN
  25. ONDANSETRON [Concomitant]
     Active Substance: ONDANSETRON
  26. POTASSIUM CHLORIDE [Concomitant]
     Active Substance: POTASSIUM CHLORIDE
  27. SENNA [Concomitant]
     Active Substance: SENNA LEAF\SENNOSIDES\SENNOSIDES A AND B
  28. VITAMIN B12 [Concomitant]
     Active Substance: CYANOCOBALAMIN
  29. VITAMIN C [Concomitant]
     Active Substance: ASCORBIC ACID
  30. VITAMIN D2 [Concomitant]
     Active Substance: ERGOCALCIFEROL

REACTIONS (1)
  - Herpes zoster [Recovering/Resolving]

NARRATIVE: CASE EVENT DATE: 20221206
